FAERS Safety Report 13178156 (Version 1)
Quarter: 2017Q1

REPORT INFORMATION
  Report Type: Spontaneous
  Country: US (occurrence: US)
  Receive Date: 20170201
  Receipt Date: 20170201
  Transmission Date: 20170428
  Serious: Yes (Hospitalization)
  Sender: FDA-Public Use
  Company Number: None

PATIENT
  Age: 45 Year
  Sex: Female
  Weight: 62.6 kg

DRUGS (1)
  1. LORLATINIB PFIZER [Suspect]
     Active Substance: LORLATINIB
     Indication: NON-SMALL CELL LUNG CANCER
     Route: 048
     Dates: start: 20161130

REACTIONS (4)
  - Spinal cord compression [None]
  - Neuropathy peripheral [None]
  - Peripheral sensory neuropathy [None]
  - Paraesthesia [None]

NARRATIVE: CASE EVENT DATE: 20170126
